FAERS Safety Report 6570394-X (Version None)
Quarter: 2010Q1

REPORT INFORMATION
  Report Type: 
  Country: None (occurrence: None)
  Receive Date: 20100204
  Receipt Date: 20090217
  Transmission Date: 20100710
  Serious: No
  Sender: FDA-Public Use
  Company Number: A0766866A

PATIENT
  Age: 51 Year
  Sex: Female

DRUGS (4)
  1. ARIXTRA [Suspect]
     Indication: DRUG USE FOR UNKNOWN INDICATION
     Dosage: 2.5MG PER DAY
     Route: 058
     Dates: start: 20090101
  2. PERCOCET [Concomitant]
  3. LEXAPRO [Concomitant]
  4. SYNTHROID [Concomitant]

REACTIONS (2)
  - GINGIVAL BLEEDING [None]
  - TREATMENT NONCOMPLIANCE [None]
